FAERS Safety Report 11997639 (Version 1)
Quarter: 2016Q1

REPORT INFORMATION
  Report Type: Spontaneous
  Country: US (occurrence: US)
  Receive Date: 20160203
  Receipt Date: 20160203
  Transmission Date: 20160526
  Serious: No
  Sender: FDA-Public Use
  Company Number: US-ANACOR-2015ANA00176

PATIENT
  Age: 63 Year
  Sex: Female

DRUGS (1)
  1. KERYDIN [Suspect]
     Active Substance: TAVABOROLE
     Dosage: 1 GTT, 1X/DAY
     Route: 061
     Dates: start: 20150807, end: 20150930

REACTIONS (2)
  - Nail hypertrophy [Unknown]
  - Application site pain [Unknown]

NARRATIVE: CASE EVENT DATE: 201509
